FAERS Safety Report 7392861-1 (Version None)
Quarter: 2011Q2

REPORT INFORMATION
  Report Type: 
  Country: None (occurrence: None)
  Receive Date: 20110404
  Receipt Date: 20110325
  Transmission Date: 20111010
  Serious: Yes (Other)
  Sender: FDA-Public Use
  Company Number: JP-ASTRAZENECA-2011SE17834

PATIENT
  Age: 66 Year
  Sex: Female

DRUGS (3)
  1. GASMOTIN [Concomitant]
     Route: 048
     Dates: start: 20110114, end: 20110204
  2. OMEPRAL [Concomitant]
     Route: 048
     Dates: start: 20110114, end: 20110204
  3. CRESTOR [Suspect]
     Route: 048
     Dates: start: 20110114, end: 20110324

REACTIONS (2)
  - EPISTAXIS [None]
  - RETINAL HAEMORRHAGE [None]
